FAERS Safety Report 6414999-5 (Version None)
Quarter: 2009Q4

REPORT INFORMATION
  Report Type: 
  Country: None (occurrence: None)
  Receive Date: 20091026
  Receipt Date: 20090721
  Transmission Date: 20100525
  Serious: No
  Sender: FDA-Public Use
  Company Number: US-ABBOTT-09P-163-0587400-00

PATIENT
  Sex: Female
  Weight: 65.83 kg

DRUGS (2)
  1. LUPRON DEPOT [Suspect]
     Indication: ENDOMETRIOSIS
     Route: 030
     Dates: start: 20090601, end: 20090701
  2. NORETHINDRONE [Suspect]
     Indication: BACK DISORDER
     Dates: start: 20090601

REACTIONS (4)
  - DEPRESSION [None]
  - FOOD CRAVING [None]
  - INSOMNIA [None]
  - WEIGHT INCREASED [None]
